FAERS Safety Report 10354231 (Version 3)
Quarter: 2014Q3

REPORT INFORMATION
  Report Type: Spontaneous
  Country: BR (occurrence: BR)
  Receive Date: 20140731
  Receipt Date: 20140801
  Transmission Date: 20150326
  Serious: Yes (Hospitalization)
  Sender: FDA-Public Use
  Company Number: BR-PFIZER INC-2014199548

PATIENT
  Age: 71 Year
  Sex: Male
  Weight: 73 kg

DRUGS (3)
  1. LYRICA [Suspect]
     Active Substance: PREGABALIN
     Indication: EYE PAIN
     Dosage: 75 MG, 2X/DAY (MORNING AND NIGHT)
     Route: 048
     Dates: start: 20140701, end: 201407
  2. LYRICA [Suspect]
     Active Substance: PREGABALIN
     Dosage: 1 TABLET OF 75MG IN THE MORNING AND 2 TABLETS AT NIGHT
     Route: 048
     Dates: start: 201407, end: 20140724
  3. LYRICA [Suspect]
     Active Substance: PREGABALIN
     Dosage: 75 MG, 2X/DAY (MORNING AND NIGHT)
     Route: 048
     Dates: start: 20140725

REACTIONS (3)
  - Disease progression [Not Recovered/Not Resolved]
  - Drug ineffective [Unknown]
  - Herpes zoster [Not Recovered/Not Resolved]

NARRATIVE: CASE EVENT DATE: 20140715
